FAERS Safety Report 6066293-2 (Version None)
Quarter: 2009Q1

REPORT INFORMATION
  Report Type: 
  Country: None (occurrence: None)
  Receive Date: 20090205
  Receipt Date: 20090105
  Transmission Date: 20090719
  Serious: No
  Sender: FDA-Public Use
  Company Number: US-BAYER-200910244NA

PATIENT
  Age: 55 Year
  Sex: Female
  Weight: 61 kg

DRUGS (2)
  1. CLIMARA [Suspect]
     Indication: MENOPAUSAL SYMPTOMS
     Route: 062
  2. LAMISIL [Concomitant]

REACTIONS (5)
  - APPLICATION SITE IRRITATION [None]
  - APPLICATION SITE RASH [None]
  - APPLICATION SITE REACTION [None]
  - ERYTHEMA [None]
  - PRURITUS [None]
